FAERS Safety Report 7024347-8 (Version None)
Quarter: 2010Q4

REPORT INFORMATION
  Report Type: 
  Country: None (occurrence: None)
  Receive Date: 20101001
  Receipt Date: 20100924
  Transmission Date: 20110411
  Serious: Yes (Hospitalization)
  Sender: FDA-Public Use
  Company Number: IT-JNJFOC-20100907401

PATIENT
  Sex: Male

DRUGS (5)
  1. LEVOFLOXACIN [Suspect]
     Indication: INFECTION
     Route: 048
     Dates: start: 20090923, end: 20090928
  2. COUMADIN [Suspect]
     Indication: DEEP VEIN THROMBOSIS
     Route: 048
     Dates: start: 20090803, end: 20091004
  3. OMEPRAZOLE [Concomitant]
     Route: 048
  4. ENALAPRIL MALEATE [Concomitant]
     Route: 065
  5. SALMETEROL XINAFOATE [Concomitant]
     Route: 065

REACTIONS (2)
  - DIARRHOEA [None]
  - MELAENA [None]
